FAERS Safety Report 12788507 (Version 4)
Quarter: 2017Q1

REPORT INFORMATION
  Report Type: Spontaneous
  Country: FR (occurrence: FR)
  Receive Date: 20160928
  Receipt Date: 20170203
  Transmission Date: 20170428
  Serious: Yes (Other)
  Sender: FDA-Public Use
  Company Number: FR-SA-2016SA172275

PATIENT
  Age: 84 Year
  Sex: Female
  Weight: 70 kg

DRUGS (15)
  1. TOPALGIC [Concomitant]
     Active Substance: TRAMADOL
     Dosage: 1 UNIT ON MORNING AND ON EVENING DOSE:1 UNIT(S)
     Dates: start: 20160818
  2. ASPEGIC [Suspect]
     Active Substance: ASPIRIN DL-LYSINE
     Dosage: DOSE:1 UNIT(S)
     Route: 048
     Dates: start: 20160829
  3. OMEPRAZOLE. [Concomitant]
     Active Substance: OMEPRAZOLE
     Dosage: DOSE:1 UNIT(S)
     Dates: start: 20160829
  4. DOLIPRANE [Concomitant]
     Active Substance: ACETAMINOPHEN
     Indication: PAIN
     Dosage: 1 UNIT IF PAIN (MAX3 UNITS DAILY) DOSE:1 UNIT(S)
     Dates: start: 20160829
  5. DUOPLAVIN [Concomitant]
     Active Substance: ASPIRIN\CLOPIDOGREL
     Dates: start: 20160503, end: 20160817
  6. CLOPIDOGREL BISULFATE. [Suspect]
     Active Substance: CLOPIDOGREL BISULFATE
     Indication: STENT PLACEMENT
     Dosage: DOSE:1 UNIT(S)
     Route: 048
     Dates: start: 20160503, end: 20160817
  7. ASPIRINE PROTECT [Concomitant]
     Active Substance: ASPIRIN
     Dosage: 1 UNIT AT MIDDAY DOSE:1 UNIT(S)
     Dates: start: 20160818
  8. HYPERIUM [Concomitant]
     Active Substance: RILMENIDINE PHOSPHATE
     Dosage: 1 UNIT ON MORNING AND ON EVENING DOSE:1 UNIT(S)
     Dates: start: 20160818
  9. BRILIQUE [Concomitant]
     Active Substance: TICAGRELOR
     Dates: start: 20160818, end: 20160829
  10. CLOPIDOGREL BISULFATE. [Suspect]
     Active Substance: CLOPIDOGREL BISULFATE
     Indication: STENT PLACEMENT
     Dosage: DOSE:1 UNIT(S)
     Route: 048
     Dates: start: 20160829
  11. PARACETAMOL [Concomitant]
     Active Substance: ACETAMINOPHEN
     Dosage: 1 UNIT ON MORNING , AT MIDDAY AND ON EVENING DOSE:1 UNIT(S)
     Dates: start: 20160818
  12. INEXIUM [Concomitant]
     Active Substance: ESOMEPRAZOLE
     Dosage: IN EVENING DOSE:1 UNIT(S)
     Dates: start: 20160818
  13. EUPRESSYL [Concomitant]
     Active Substance: URAPIDIL
     Dosage: IN MORNING AND EVENING DOSE:1 UNIT(S)
     Dates: start: 20160829
  14. DIFFU K [Concomitant]
     Active Substance: POTASSIUM CHLORIDE
     Dosage: MORNING AND EVENING DOSE:1 UNIT(S)
     Dates: start: 20160829
  15. COTAREG [Concomitant]
     Active Substance: HYDROCHLOROTHIAZIDE\VALSARTAN
     Dosage: IN MORNING DOSE:1 UNIT(S)
     Dates: start: 20160818

REACTIONS (2)
  - Skin haemorrhage [Not Recovered/Not Resolved]
  - Oedema peripheral [Not Recovered/Not Resolved]

NARRATIVE: CASE EVENT DATE: 20160610
